FAERS Safety Report 5127514-3 (Version None)
Quarter: 2006Q4

REPORT INFORMATION
  Report Type: 
  Country: None (occurrence: None)
  Receive Date: 20061016
  Receipt Date: 20060612
  Transmission Date: 20070319
  Serious: Yes (Hospitalization)
  Sender: FDA-Public Use
  Company Number: US-BAYER-200614142BWH

PATIENT
  Age: 77 Year
  Sex: Female
  Weight: 57 kg

DRUGS (10)
  1. SORAFENIB [Suspect]
     Indication: METASTATIC MALIGNANT MELANOMA
     Dosage: TOTAL DAILY DOSE: 800 MG  UNIT DOSE: 200 MG
     Route: 048
     Dates: start: 20060519, end: 20060609
  2. MOXIFLOXACIN HCL [Suspect]
     Dosage: TOTAL DAILY DOSE: 400 MG
     Route: 048
     Dates: start: 20060518, end: 20060518
  3. LISINOPRIL [Concomitant]
     Indication: HYPERTENSION
     Dosage: UNIT DOSE: 10 MG
     Dates: start: 20060401
  4. XANAX [Concomitant]
     Indication: ANXIETY
     Dosage: TOTAL DAILY DOSE: 0.50 MG
     Dates: start: 20060425
  5. ZOSYN [Concomitant]
     Indication: PNEUMONIA ASPIRATION
  6. METOPROLOL TARTRATE [Concomitant]
  7. PROTONIX [Concomitant]
  8. ATIVAN [Concomitant]
  9. CEREBYX [Concomitant]
  10. HALDOL [Concomitant]
     Indication: DELIRIUM

REACTIONS (11)
  - AGITATION [None]
  - DELIRIUM [None]
  - DISEASE PROGRESSION [None]
  - INTRAOCULAR MELANOMA [None]
  - LOSS OF CONSCIOUSNESS [None]
  - MENTAL STATUS CHANGES [None]
  - METASTASES TO ABDOMINAL CAVITY [None]
  - METASTASES TO CENTRAL NERVOUS SYSTEM [None]
  - METASTASES TO LUNG [None]
  - PNEUMONIA ASPIRATION [None]
  - URINARY INCONTINENCE [None]
